FAERS Safety Report 6643764-9 (Version None)
Quarter: 2010Q1

REPORT INFORMATION
  Report Type: 
  Country: None (occurrence: None)
  Receive Date: 20100322
  Receipt Date: 20100315
  Transmission Date: 20100710
  Serious: Yes (Death)
  Sender: FDA-Public Use
  Company Number: US-CELGENEUS-163-20785-10020213

PATIENT
  Sex: Male

DRUGS (7)
  1. THALOMID [Suspect]
     Indication: MULTIPLE MYELOMA
     Route: 048
     Dates: start: 20100101, end: 20100101
  2. DEXAMETHASONE [Suspect]
     Indication: MULTIPLE MYELOMA
     Route: 051
     Dates: start: 20100101, end: 20100101
  3. DOXORUBICIN [Suspect]
     Indication: MULTIPLE MYELOMA
     Route: 051
     Dates: start: 20100101, end: 20100101
  4. VINCRISTINE [Suspect]
     Indication: MULTIPLE MYELOMA
     Route: 051
     Dates: start: 20100101, end: 20100101
  5. LISINOPRIL [Concomitant]
     Route: 065
     Dates: start: 20091201
  6. PLATELETS [Concomitant]
     Route: 051
     Dates: start: 20091228, end: 20091228
  7. OXYGEN [Concomitant]
     Indication: DRUG USE FOR UNKNOWN INDICATION
     Route: 055

REACTIONS (2)
  - LEUKAEMIA PLASMACYTIC [None]
  - RESPIRATORY FAILURE [None]
